FAERS Safety Report 21373179 (Version 2)
Quarter: 2022Q4

REPORT INFORMATION
  Report Type: Spontaneous
  Country: None (occurrence: US)
  Receive Date: 20220924
  Receipt Date: 20221223
  Transmission Date: 20230112
  Serious: No
  Sender: FDA-Public Use
  Company Number: US-CTI BIOPHARMA-2022US02929

PATIENT

DRUGS (2)
  1. VONJO [Suspect]
     Active Substance: PACRITINIB
     Indication: Myelofibrosis
     Dosage: 100 MILLIGRAM, BID
     Route: 048
     Dates: start: 20220623
  2. VONJO [Suspect]
     Active Substance: PACRITINIB
     Dosage: 100 MG, QD
     Route: 048
     Dates: start: 20220809

REACTIONS (6)
  - Increased appetite [Unknown]
  - Energy increased [None]
  - Skin laceration [None]
  - Back pain [None]
  - Platelet count decreased [None]
  - White blood cell count decreased [None]
